FAERS Safety Report 17986463 (Version 2)
Quarter: 2020Q3

REPORT INFORMATION
  Report Type: Report from Study
  Country: CA (occurrence: CA)
  Receive Date: 20200706
  Receipt Date: 20200916
  Transmission Date: 20201103
  Serious: Yes (Other)
  Sender: FDA-Public Use
  Company Number: CA-JNJFOC-20190628455

PATIENT
  Age: 62 Year
  Sex: Female

DRUGS (3)
  1. SIMPONI [Suspect]
     Active Substance: GOLIMUMAB
     Dosage: SMARTJECT AUTOINJECTOR?STRENGTH = 50 MG
     Route: 058
     Dates: start: 20190315
  2. SIMPONI [Suspect]
     Active Substance: GOLIMUMAB
     Indication: PSORIATIC ARTHROPATHY
     Dosage: SMARTJECT AUTOINJECTOR?STRENGTH = 50 MG
     Route: 058
     Dates: start: 20190416
  3. SIMPONI [Suspect]
     Active Substance: GOLIMUMAB
     Dosage: SMARTJECT AUTOINJECTOR?STRENGTH = 50 MG
     Route: 058

REACTIONS (5)
  - Ear infection [Recovering/Resolving]
  - Product use issue [Unknown]
  - Off label use [Unknown]
  - Psoriatic arthropathy [Recovered/Resolved]
  - Therapeutic response decreased [Unknown]

NARRATIVE: CASE EVENT DATE: 20190611
